FAERS Safety Report 24891610 (Version 2)
Quarter: 2025Q3

REPORT INFORMATION
  Report Type: Spontaneous
  Country: US (occurrence: US)
  Receive Date: 20250127
  Receipt Date: 20250810
  Transmission Date: 20251021
  Serious: No
  Sender: ALEXION PHARMACEUTICALS
  Company Number: US-AstraZeneca-CH-00789732A

PATIENT
  Sex: Male

DRUGS (1)
  1. FASENRA [Suspect]
     Active Substance: BENRALIZUMAB
     Indication: Asthma
     Route: 065

REACTIONS (8)
  - Inappropriate schedule of product administration [Unknown]
  - Back pain [Unknown]
  - Depression [Unknown]
  - Pain in extremity [Unknown]
  - Arthralgia [Unknown]
  - Post-traumatic stress disorder [Unknown]
  - Mental disorder [Unknown]
  - Anxiety [Unknown]
